FAERS Safety Report 7252422-1 (Version None)
Quarter: 2011Q1

REPORT INFORMATION
  Report Type: 
  Country: None (occurrence: None)
  Receive Date: 20110129
  Receipt Date: 20100106
  Transmission Date: 20110831
  Serious: No
  Sender: FDA-Public Use
  Company Number: US-ABBOTT-10P-163-0617866-00

PATIENT
  Sex: Female
  Weight: 81.72 kg

DRUGS (6)
  1. ZOLOFT [Concomitant]
     Indication: HYPERSENSITIVITY
  2. PROTONIX [Concomitant]
     Indication: CROHN'S DISEASE
  3. HUMIRA [Suspect]
     Indication: CROHN'S DISEASE
     Dates: start: 20090901
  4. HYDROXYZINE [Concomitant]
     Indication: HYPERSENSITIVITY
  5. CLARITIN [Concomitant]
     Indication: HYPERSENSITIVITY
  6. LIALDA [Concomitant]
     Indication: CROHN'S DISEASE

REACTIONS (2)
  - BASEDOW'S DISEASE [None]
  - CHEST PAIN [None]
